FAERS Safety Report 4629937-5 (Version None)
Quarter: 2005Q2

REPORT INFORMATION
  Report Type: 
  Country: None (occurrence: None)
  Receive Date: 20050408
  Receipt Date: 20040721
  Transmission Date: 20051028
  Serious: Yes (Other)
  Sender: FDA-Public Use
  Company Number: US-ROCHE-375148

PATIENT
  Age: 47 Year
  Sex: Male
  Weight: 83.9 kg

DRUGS (4)
  1. KLONOPIN [Suspect]
     Route: 048
     Dates: start: 20040215, end: 20040622
  2. INSULIN [Concomitant]
     Route: 058
     Dates: start: 19870615
  3. COREG [Concomitant]
     Indication: HYPERTENSION
     Route: 048
  4. ACEON [Concomitant]
     Indication: HYPERTENSION
     Route: 048

REACTIONS (6)
  - ANAEMIA [None]
  - ANXIETY [None]
  - BLOOD PRESSURE INCREASED [None]
  - HYDROCEPHALUS [None]
  - PRIAPISM [None]
  - SKIN ULCER [None]
